FAERS Safety Report 26009172 (Version 1)
Quarter: 2025Q4

REPORT INFORMATION
  Report Type: Spontaneous
  Country: US (occurrence: US)
  Receive Date: 20251107
  Receipt Date: 20251107
  Transmission Date: 20260117
  Serious: No
  Sender: BRISTOL-MYERS SQUIBB COMPANY
  Company Number: US-BRISTOL-MYERS SQUIBB COMPANY-2025-151035

PATIENT
  Age: 26 Year
  Sex: Female

DRUGS (2)
  1. ZEPOSIA [Suspect]
     Active Substance: OZANIMOD HYDROCHLORIDE
     Indication: Proctitis ulcerative
     Route: 048
     Dates: start: 202504
  2. INFLECTRA [Concomitant]
     Active Substance: INFLIXIMAB-DYYB
     Indication: Product used for unknown indication

REACTIONS (1)
  - Abdominal symptom [Unknown]

NARRATIVE: CASE EVENT DATE: 20251001
